FAERS Safety Report 19149429 (Version 2)
Quarter: 2021Q2

REPORT INFORMATION
  Report Type: Other
  Country: CA (occurrence: CA)
  Receive Date: 20210417
  Receipt Date: 20210524
  Transmission Date: 20210717
  Serious: Yes (Other)
  Sender: FDA-Public Use
  Company Number: CA-CELLTRION INC.-2021CA004669

PATIENT

DRUGS (9)
  1. PROCHLORPERAZINE. [Concomitant]
     Active Substance: PROCHLORPERAZINE
     Indication: VOMITING
     Dosage: 10 MG, 1 EVERY 4 HOURS
     Route: 048
  2. TRASTUZUMAB (UNKNOWN) [Suspect]
     Active Substance: TRASTUZUMAB
     Indication: METASTATIC SALIVARY GLAND CANCER
     Dosage: 1 EVERY 21 DAYS
     Route: 042
  3. ONT?380 [Concomitant]
     Active Substance: IRBINITINIB
     Indication: CHEMOTHERAPY
     Dosage: 300 MG, 2 EVERY 1 DAY
     Route: 048
  4. PROCHLORPERAZINE. [Concomitant]
     Active Substance: PROCHLORPERAZINE
     Indication: NAUSEA
  5. LOPERAMIDE [Concomitant]
     Active Substance: LOPERAMIDE
     Indication: DIARRHOEA
     Dosage: 2 MG
     Route: 048
  6. KADCYLA [Suspect]
     Active Substance: ADO-TRASTUZUMAB EMTANSINE
     Indication: METASTATIC SALIVARY GLAND CANCER
     Dosage: 255 MG
     Route: 042
  7. TRASTUZUMAB (UNKNOWN) [Suspect]
     Active Substance: TRASTUZUMAB
     Dosage: 360 MG, 1 EVERY 21 DAYS
     Route: 042
  8. CAPECITABINE. [Concomitant]
     Active Substance: CAPECITABINE
     Indication: CHEMOTHERAPY
     Dosage: 2500 MG, 1 EVERY 21 DAYS
     Route: 048
  9. VALTREX [Concomitant]
     Active Substance: VALACYCLOVIR HYDROCHLORIDE

REACTIONS (2)
  - Ureteral disorder [Unknown]
  - Off label use [Unknown]
